FAERS Safety Report 20893318 (Version 1)
Quarter: 2022Q2

REPORT INFORMATION
  Report Type: Spontaneous
  Country: GB (occurrence: GB)
  Receive Date: 20220531
  Receipt Date: 20220531
  Transmission Date: 20220721
  Serious: Yes (Death)
  Sender: FDA-Public Use
  Company Number: None

PATIENT
  Age: 42 Year
  Sex: Male

DRUGS (3)
  1. OCREVUS [Suspect]
     Active Substance: OCRELIZUMAB
     Indication: Relapsing-remitting multiple sclerosis
     Route: 042
     Dates: start: 20190218, end: 20210411
  2. SARS-COV-2 VACCINE [Concomitant]
     Indication: COVID-19 immunisation
     Dates: start: 20210423, end: 20210423
  3. SARS-COV-2 VACCINE [Concomitant]
     Dates: start: 20210203, end: 20210203

REACTIONS (1)
  - COVID-19 [Fatal]

NARRATIVE: CASE EVENT DATE: 20211008
